FAERS Safety Report 25953367 (Version 1)
Quarter: 2025Q4

REPORT INFORMATION
  Report Type: Report from Study
  Country: US (occurrence: US)
  Receive Date: 20251023
  Receipt Date: 20251023
  Transmission Date: 20260118
  Serious: Yes (Other)
  Sender: MALLINCKRODT
  Company Number: US-MALLINCKRODT-MNK202506410

PATIENT
  Sex: Female

DRUGS (1)
  1. CORTICOTROPIN [Suspect]
     Active Substance: CORTICOTROPIN
     Indication: Pulmonary sarcoidosis
     Dosage: UNKNOWN

REACTIONS (10)
  - Pulmonary sarcoidosis [Unknown]
  - Disease progression [Unknown]
  - Blood glucose increased [Unknown]
  - Seizure [Unknown]
  - Spondylitis [Unknown]
  - Memory impairment [Unknown]
  - Crying [Recovering/Resolving]
  - Insomnia [Unknown]
  - Fatigue [Unknown]
  - Vomiting [Recovering/Resolving]
